FAERS Safety Report 20981189 (Version 1)
Quarter: 2022Q2

REPORT INFORMATION
  Report Type: Spontaneous
  Country: JP (occurrence: JP)
  Receive Date: 20220620
  Receipt Date: 20220620
  Transmission Date: 20220720
  Serious: Yes (Hospitalization, Other)
  Sender: FDA-Public Use
  Company Number: JP-LOTUS-2022-LOTUS-049027

PATIENT
  Age: 43 Year
  Sex: Female
  Weight: 49.7 kg

DRUGS (2)
  1. METHOTREXATE [Suspect]
     Active Substance: METHOTREXATE
     Indication: Rheumatoid arthritis
  2. INFLIXIMAB [Suspect]
     Active Substance: INFLIXIMAB
     Indication: Rheumatoid arthritis
     Dosage: EVERY 8 WEEKS

REACTIONS (3)
  - Henoch-Schonlein purpura [Unknown]
  - Henoch-Schonlein purpura nephritis [Unknown]
  - Glomerulonephritis membranoproliferative [Unknown]
